FAERS Safety Report 8453988-6 (Version None)
Quarter: 2012Q2

REPORT INFORMATION
  Report Type: 
  Country: None (occurrence: None)
  Receive Date: 20120620
  Receipt Date: 20120608
  Transmission Date: 20120825
  Serious: Yes (Other)
  Sender: FDA-Public Use
  Company Number: CA-FRI-1000031079

PATIENT
  Sex: Male

DRUGS (6)
  1. ZOPICLONE [Suspect]
     Indication: INSOMNIA
  2. CITALOPRAM HYDROBROMIDE [Suspect]
     Indication: INSOMNIA
  3. ZOPICLONE [Suspect]
  4. LORAZEPAM [Suspect]
     Indication: INSOMNIA
     Route: 048
  5. LUPRON DEPOT [Suspect]
     Indication: PROSTATE CANCER
     Dosage: 30 MG
     Dates: start: 20100922
  6. CLONAZEPAM [Suspect]

REACTIONS (16)
  - MEMORY IMPAIRMENT [None]
  - GAIT DISTURBANCE [None]
  - FATIGUE [None]
  - SOMNOLENCE [None]
  - PAIN IN EXTREMITY [None]
  - WRONG DRUG ADMINISTERED [None]
  - OFF LABEL USE [None]
  - SCIATICA [None]
  - ROAD TRAFFIC ACCIDENT [None]
  - NEOPLASM SKIN [None]
  - ARTHRALGIA [None]
  - INCREASED APPETITE [None]
  - PROSTATE CANCER METASTATIC [None]
  - FALL [None]
  - INSOMNIA [None]
  - WEIGHT INCREASED [None]
